FAERS Safety Report 10034577 (Version 1)
Quarter: 2014Q1

REPORT INFORMATION
  Report Type: Spontaneous
  Country: IT (occurrence: IT)
  Receive Date: 20140325
  Receipt Date: 20140325
  Transmission Date: 20141002
  Serious: Yes (Other)
  Sender: FDA-Public Use
  Company Number: IT-MYLANLABS-2014S1005869

PATIENT
  Age: 42 Year
  Sex: Female

DRUGS (3)
  1. TAMOXIFEN [Suspect]
     Indication: INTRADUCTAL PROLIFERATIVE BREAST LESION
     Dosage: 20 MG/DAY
     Route: 065
  2. VENLAFAXINE [Suspect]
     Indication: MAJOR DEPRESSION
     Dosage: UP TO 300MG
     Route: 065
  3. ESCITALOPRAM [Concomitant]
     Indication: MAJOR DEPRESSION
     Dosage: 20 MG/DAY
     Route: 065

REACTIONS (5)
  - Major depression [Recovered/Resolved]
  - Weight increased [Unknown]
  - Headache [Unknown]
  - Hot flush [Unknown]
  - Sleep disorder [Unknown]
